FAERS Safety Report 8173765-3 (Version None)
Quarter: 2012Q1

REPORT INFORMATION
  Report Type: 
  Country: None (occurrence: None)
  Receive Date: 20120224
  Receipt Date: 20120214
  Transmission Date: 20120608
  Serious: Yes (Hospitalization)
  Sender: FDA-Public Use
  Company Number: 1000028433

PATIENT
  Age: 41 Year
  Sex: Female

DRUGS (14)
  1. SESQUIHYDRATE) ( PANTOPRAZOLE SODIUM SESQUIHYDRATE) [Concomitant]
  2. XANAX [Concomitant]
  3. TESSALON PERLES (BENZONATATE) (BENZONATATE) [Concomitant]
  4. SAVELLA [Suspect]
     Indication: FIBROMYALGIA
     Dosage: SEE IMAGE
     Route: 048
     Dates: start: 20080101
  5. SAVELLA [Suspect]
     Indication: FIBROMYALGIA
     Dosage: SEE IMAGE
     Route: 048
     Dates: start: 20080101, end: 20080101
  6. PERCOCET(OXYCODONE, ACETAMINOPHEN) (OXYCODONE, ACETAMINOPHEN) [Concomitant]
  7. SOMA (CART SOPRODOL)(CARISOPRODOL) [Concomitant]
  8. METOPROLOL SUCCINATE [Concomitant]
  9. CYMBALTA (DULOXETINE HYDROCHLORIDE) (DULOXETINE HYDROCHLORIDE) [Concomitant]
  10. TRAZODONE (TRAZODONE) (TRAZODONE) [Concomitant]
  11. PROTONIX [Concomitant]
  12. TRILIPIX (CHOLINE FENOFIBRATE) (CHOLINE FENOFIBRATE) [Concomitant]
  13. MIRAPEX (PRAMIPEXOLE DIHYDROCHLORI DE) ( PRAMIPEXOLE DIHYDROCHLORIDE) [Concomitant]
  14. ADDERALL (OBETROL) (OBETROL) [Concomitant]

REACTIONS (3)
  - NYSTAGMUS [None]
  - VERTIGO [None]
  - HYPONATRAEMIA [None]
